FAERS Safety Report 24559951 (Version 2)
Quarter: 2024Q4

REPORT INFORMATION
  Report Type: Spontaneous
  Country: JP (occurrence: JP)
  Receive Date: 20241029
  Receipt Date: 20241202
  Transmission Date: 20250114
  Serious: Yes (Other)
  Sender: BAYER HEALTHCARE PHARMACEUTICALS INC.
  Company Number: JP-BAYER-2024A150295

PATIENT
  Age: 87 Year
  Sex: Female

DRUGS (2)
  1. ADEMPAS [Suspect]
     Active Substance: RIOCIGUAT
     Indication: Pulmonary hypertension
     Dosage: UNK
  2. ADEMPAS [Suspect]
     Active Substance: RIOCIGUAT
     Indication: Pulmonary hypertension
     Dosage: 2.5 MG, TID
     Route: 048

REACTIONS (5)
  - Arterial perforation [Unknown]
  - Iatrogenic injury [Unknown]
  - Dyspnoea exertional [Unknown]
  - Pulmonary arterial pressure increased [Unknown]
  - Haemoptysis [Recovered/Resolved]
